FAERS Safety Report 7595674-0 (Version None)
Quarter: 2011Q3

REPORT INFORMATION
  Report Type: 
  Country: None (occurrence: None)
  Receive Date: 20110707
  Receipt Date: 20110627
  Transmission Date: 20111222
  Serious: Yes (Hospitalization)
  Sender: FDA-Public Use
  Company Number: US-MERCK-1106USA01810

PATIENT
  Age: 48 Year
  Sex: Male

DRUGS (10)
  1. LORAZEPAM [Concomitant]
     Route: 065
  2. URSODIOL [Concomitant]
     Route: 065
  3. PLAVIX [Concomitant]
     Route: 065
  4. OMEPRAZOLE [Concomitant]
     Route: 065
  5. ASPIRIN [Concomitant]
     Route: 065
  6. XANAX [Concomitant]
     Route: 065
  7. ZOCOR [Suspect]
     Route: 048
     Dates: start: 20100101
  8. LOSARTAN POTASSIUM [Concomitant]
     Route: 065
  9. METOPROLOL [Concomitant]
     Route: 065
  10. NITRO-DUR [Concomitant]
     Route: 065

REACTIONS (6)
  - PAIN IN EXTREMITY [None]
  - DYSPNOEA [None]
  - CHEST PAIN [None]
  - MUSCULAR WEAKNESS [None]
  - ANGIOPATHY [None]
  - SPEECH DISORDER [None]
